FAERS Safety Report 20736538 (Version 1)
Quarter: 2022Q2

REPORT INFORMATION
  Report Type: Spontaneous
  Country: US (occurrence: US)
  Receive Date: 20220421
  Receipt Date: 20220421
  Transmission Date: 20220721
  Serious: No
  Sender: FDA-Public Use
  Company Number: US-SUNOVION-2022SUN001285

PATIENT
  Sex: Female

DRUGS (2)
  1. LUNESTA [Suspect]
     Active Substance: ESZOPICLONE
     Dosage: 3 MG, HS
     Route: 048
  2. LUNESTA [Suspect]
     Active Substance: ESZOPICLONE
     Dosage: 1.5 MG, SINGLE (HALF 3MG TABLET)
     Route: 048
     Dates: start: 20220418

REACTIONS (6)
  - Withdrawal syndrome [Unknown]
  - Headache [Unknown]
  - Anxiety [Unknown]
  - Nausea [Unknown]
  - Product dose omission in error [Unknown]
  - Wrong technique in product usage process [Unknown]

NARRATIVE: CASE EVENT DATE: 20220417
